FAERS Safety Report 19597675 (Version 1)
Quarter: 2021Q3

REPORT INFORMATION
  Report Type: Report from Study
  Country: None (occurrence: US)
  Receive Date: 20210723
  Receipt Date: 20210723
  Transmission Date: 20211014
  Serious: Yes (Hospitalization, Other)
  Sender: FDA-Public Use
  Company Number: US-ABBVIE-21K-163-3872315-00

PATIENT
  Age: 69 Year
  Sex: Male

DRUGS (3)
  1. VENCLEXTA [Suspect]
     Active Substance: VENETOCLAX
     Indication: ACUTE MYELOID LEUKAEMIA
     Dosage: TAKE TWO TABLETS EVERY 24 HOUR
     Route: 048
     Dates: start: 2021
  2. CRESEMBA [Concomitant]
     Active Substance: ISAVUCONAZONIUM SULFATE
     Indication: PRODUCT USED FOR UNKNOWN INDICATION
  3. VENCLEXTA [Suspect]
     Active Substance: VENETOCLAX
     Indication: DYSPLASIA
     Dosage: TAKE TWO TABLETS EVERY 24 HOUR
     Route: 048
     Dates: start: 20210421, end: 2021

REACTIONS (3)
  - Hospitalisation [Not Recovered/Not Resolved]
  - Cognitive disorder [Unknown]
  - Off label use [Unknown]

NARRATIVE: CASE EVENT DATE: 2021
